FAERS Safety Report 8094994-3 (Version None)
Quarter: 2012Q1

REPORT INFORMATION
  Report Type: 
  Country: None (occurrence: None)
  Receive Date: 20120131
  Receipt Date: 20120131
  Transmission Date: 20120608
  Serious: Yes (Hospitalization)
  Sender: FDA-Public Use
  Company Number: None

PATIENT
  Age: 6 Day
  Sex: Female
  Weight: 0.97 kg

DRUGS (2)
  1. INTRALIPID 20% [Concomitant]
     Dosage: 0.72 ML/HR, 14.5 ML
     Route: 042
  2. INTRALIPID 20% [Suspect]
     Indication: FATTY ACID DEFICIENCY
     Dosage: 0.72 ML/HR, 14.5 ML
     Route: 042

REACTIONS (2)
  - INCORRECT PRODUCT STORAGE [None]
  - LIQUID PRODUCT PHYSICAL ISSUE [None]
